FAERS Safety Report 8660740 (Version 2)
Quarter: 2013Q4

REPORT INFORMATION
  Report Type: Spontaneous
  Country: FR (occurrence: FR)
  Receive Date: 20120711
  Receipt Date: 20131031
  Transmission Date: 20140711
  Serious: Yes (Hospitalization)
  Sender: FDA-Public Use
  Company Number: FR-009507513-1207FRA00007

PATIENT
  Age: 74 Year
  Sex: Female
  Weight: 50 kg

DRUGS (2)
  1. SINEMET [Suspect]
     Indication: PARKINSON^S DISEASE
     Dosage: 300MG-30
     Route: 048
     Dates: start: 2009, end: 201206
  2. SINEMET [Suspect]
     Dosage: 300MG-30
     Route: 048
     Dates: start: 201206, end: 20120607

REACTIONS (3)
  - Oromandibular dystonia [Recovered/Resolved]
  - Dyspnoea [Recovered/Resolved]
  - Oromandibular dystonia [Recovering/Resolving]
